FAERS Safety Report 17502803 (Version 2)
Quarter: 2020Q1

REPORT INFORMATION
  Report Type: Spontaneous
  Country: DE (occurrence: DE)
  Receive Date: 20200305
  Receipt Date: 20200309
  Transmission Date: 20200409
  Serious: Yes (Death)
  Sender: FDA-Public Use
  Company Number: DE-PFIZER INC-2020098015

PATIENT
  Sex: Female

DRUGS (2)
  1. TRASTUZUMAB. [Suspect]
     Active Substance: TRASTUZUMAB
     Indication: METASTASES TO LUNG
  2. TRASTUZUMAB. [Suspect]
     Active Substance: TRASTUZUMAB
     Indication: BREAST CANCER
     Dosage: UNK, EVERY 3 WEEKS (FROM 6 WEEKS PRECONCEPTION UNTIL 23 WEEKS OF GESTATION)
     Route: 064

REACTIONS (2)
  - Maternal exposure during pregnancy [Fatal]
  - Premature baby [Fatal]
